FAERS Safety Report 6218495-X (Version None)
Quarter: 2009Q2

REPORT INFORMATION
  Report Type: 
  Country: None (occurrence: None)
  Receive Date: 20090604
  Receipt Date: 20090604
  Transmission Date: 20091009
  Serious: Yes (Life-Threatening, Hospitalization)
  Sender: FDA-Public Use
  Company Number: None

PATIENT
  Age: 67 Year
  Sex: Male
  Weight: 81.6475 kg

DRUGS (1)
  1. ZOCOR [Suspect]
     Indication: BLOOD CHOLESTEROL INCREASED
     Dosage: 20MG ONCE A DAY PO
     Route: 048
     Dates: start: 19991013, end: 20000115

REACTIONS (3)
  - INADEQUATE ANALGESIA [None]
  - NEUROPATHY PERIPHERAL [None]
  - QUALITY OF LIFE DECREASED [None]
